FAERS Safety Report 17286565 (Version 1)
Quarter: 2020Q1

REPORT INFORMATION
  Report Type: Spontaneous
  Country: US (occurrence: US)
  Receive Date: 20191231
  Receipt Date: 20191231
  Transmission Date: 20200409
  Serious: No
  Sender: FDA-Public Use
  Company Number: None

PATIENT

DRUGS (2)
  1. MARIJUANA HERB, THC OILS [Suspect]
     Active Substance: CANNABIS SATIVA SUBSP. INDICA TOP
  2. DANK VAPES, CHRONIC CARTS ? FLAVORS: ^SOUR PATCH, FRUITY PEBBLES, 24 K [Suspect]
     Active Substance: .DELTA.8-TETRAHYDROCANNABINOL\DEVICE\HERBALS\NICOTINE

REACTIONS (1)
  - Respiratory disorder [None]
